FAERS Safety Report 9243210 (Version 2)
Quarter: 2013Q2

REPORT INFORMATION
  Report Type: Spontaneous
  Country: GB (occurrence: GB)
  Receive Date: 20130419
  Receipt Date: 20130501
  Transmission Date: 20140414
  Serious: Yes (Death, Hospitalization)
  Sender: FDA-Public Use
  Company Number: GB-B.I. PHARMACEUTICALS,INC./RIDGEFIELD-2013-UK-00908UK

PATIENT
  Age: 93 Year
  Sex: Male
  Weight: 68 kg

DRUGS (10)
  1. PRADAXA [Suspect]
     Indication: ATRIAL FIBRILLATION
     Dosage: 150 MG
     Route: 048
     Dates: start: 20130215
  2. DIGOXIN [Concomitant]
     Dosage: 125 MCG
  3. CANDESARTAN [Concomitant]
     Dosage: 4 MG
  4. LATANOPROST EYE DROPS [Concomitant]
     Dosage: 50MCG/ML - 1 DROP DAILY
     Route: 031
  5. BRIMONIDINE/TIMOLOL [Concomitant]
     Dosage: BRIMONIDINE 2MG/ML, TIMOLOL 5MG/ML - 1 DROP BD
     Route: 031
  6. GLYCERYL TRINITRATE [Concomitant]
     Dosage: 2 PUF
  7. SPIRONOLACTONE [Concomitant]
     Dosage: 25 MG
  8. ALENDRONIC ACID [Concomitant]
     Dosage: ONE TO BE TAKEN ON THE SAME DAY EACH WEEK
  9. BISOPROLOL [Concomitant]
     Dosage: 2.5 MG
  10. BUMETANIDE [Concomitant]
     Dosage: 2 MG

REACTIONS (4)
  - Sepsis [Fatal]
  - Gastroenteritis [Fatal]
  - Syncope [Fatal]
  - Diarrhoea [Unknown]
